FAERS Safety Report 4728728-4 (Version None)
Quarter: 2005Q3

REPORT INFORMATION
  Report Type: 
  Country: None (occurrence: None)
  Receive Date: 20050727
  Receipt Date: 20050711
  Transmission Date: 20060218
  Serious: Yes (Other)
  Sender: FDA-Public Use
  Company Number: 8011043

PATIENT
  Age: 38 Year
  Sex: Female
  Weight: 65.9 kg

DRUGS (8)
  1. KEPPRA [Suspect]
     Indication: COMPLEX PARTIAL SEIZURES
     Dosage: 1500 MG 2/D PO
     Route: 048
     Dates: start: 20031201, end: 20050401
  2. KEPPRA [Suspect]
     Indication: COMPLEX PARTIAL SEIZURES
     Dosage: 3250 MG PO
     Route: 048
     Dates: start: 20050401, end: 20050623
  3. KEPPRA [Suspect]
     Indication: COMPLEX PARTIAL SEIZURES
     Dosage: 1000 MG 2/D PO
     Route: 048
     Dates: start: 20050624, end: 20050630
  4. KEPPRA [Suspect]
     Indication: COMPLEX PARTIAL SEIZURES
     Dosage: 500 MG 2/D PO
     Route: 048
     Dates: start: 20050701, end: 20050708
  5. KEPPRA [Suspect]
     Indication: COMPLEX PARTIAL SEIZURES
     Dosage: 500 MG/D PO
     Route: 048
     Dates: start: 20050709
  6. PREDNISONE [Concomitant]
  7. TOPROL-XL [Concomitant]
  8. PHENOBARBITAL [Concomitant]

REACTIONS (9)
  - ABDOMINAL PAIN UPPER [None]
  - CELLULITIS [None]
  - CONDITION AGGRAVATED [None]
  - ERYTHEMA [None]
  - FATIGUE [None]
  - ONYCHOMYCOSIS [None]
  - PLATELET COUNT DECREASED [None]
  - SKIN LACERATION [None]
  - WHITE BLOOD CELL COUNT DECREASED [None]
